FAERS Safety Report 19450566 (Version 2)
Quarter: 2021Q3

REPORT INFORMATION
  Report Type: Report from Study
  Country: US (occurrence: US)
  Receive Date: 20210622
  Receipt Date: 20210707
  Transmission Date: 20211014
  Serious: Yes (Hospitalization)
  Sender: FDA-Public Use
  Company Number: US-BIOGEN-2021BI01001954

PATIENT
  Age: 48 Year
  Sex: Female

DRUGS (1)
  1. TYSABRI [Suspect]
     Active Substance: NATALIZUMAB
     Indication: MULTIPLE SCLEROSIS
     Route: 065
     Dates: start: 20201119, end: 20210311

REACTIONS (8)
  - Fatigue [Recovered/Resolved]
  - Decreased immune responsiveness [Unknown]
  - Pain [Recovered/Resolved]
  - Lymphadenopathy [Unknown]
  - Infection [Recovered/Resolved]
  - Headache [Unknown]
  - Hypersensitivity [Unknown]
  - Asthenia [Recovered/Resolved]

NARRATIVE: CASE EVENT DATE: 202101
